FAERS Safety Report 19028408 (Version 1)
Quarter: 2021Q1

REPORT INFORMATION
  Report Type: Spontaneous
  Country: US (occurrence: US)
  Receive Date: 20210318
  Receipt Date: 20210318
  Transmission Date: 20210420
  Serious: Yes (Other)
  Sender: FDA-Public Use
  Company Number: US-SCILEX PHARMACEUTICALS INC.-2021SCX00001

PATIENT
  Age: 77 Year
  Sex: Female
  Weight: 64.4 kg

DRUGS (10)
  1. FUROSEMIDE. [Concomitant]
     Active Substance: FUROSEMIDE
  2. NORCO [Concomitant]
     Active Substance: ACETAMINOPHEN\HYDROCODONE BITARTRATE
  3. ALENDRONATE SODIUM. [Concomitant]
     Active Substance: ALENDRONATE SODIUM
     Dosage: UNK, 1X/WEEK
  4. ZTLIDO [Suspect]
     Active Substance: LIDOCAINE
     Indication: BACK PAIN
     Dosage: 1 PATCH, 1X/DAY, 12 HOURS ON, THEN OFF 12 HOURS; TO LOWER BACK
     Route: 061
     Dates: start: 202012, end: 20201213
  5. CYMBALTA [Concomitant]
     Active Substance: DULOXETINE HYDROCHLORIDE
  6. LEVOTHYROXINE. [Concomitant]
     Active Substance: LEVOTHYROXINE
  7. SOMA [Concomitant]
     Active Substance: CARISOPRODOL
  8. OMEPRAZOLE. [Concomitant]
     Active Substance: OMEPRAZOLE
  9. LISINOPRIL. [Concomitant]
     Active Substance: LISINOPRIL
  10. DIAZEPAM. [Concomitant]
     Active Substance: DIAZEPAM

REACTIONS (2)
  - Dermatitis contact [Recovered/Resolved]
  - Swollen tongue [Recovered/Resolved]

NARRATIVE: CASE EVENT DATE: 202012
